FAERS Safety Report 5528052-6 (Version None)
Quarter: 2007Q4

REPORT INFORMATION
  Report Type: 
  Country: None (occurrence: None)
  Receive Date: 20071128
  Receipt Date: 20071121
  Transmission Date: 20080405
  Serious: Yes (Hospitalization)
  Sender: FDA-Public Use
  Company Number: GB-ELI_LILLY_AND_COMPANY-GB200711005247

PATIENT
  Age: 54 Year
  Sex: Male

DRUGS (2)
  1. OLANZAPINE [Suspect]
     Indication: BIPOLAR DISORDER
     Dosage: 15 MG, UNK
  2. VALPROATE SODIUM [Concomitant]
     Dosage: 1000 MG, UNK

REACTIONS (2)
  - HOSPITALISATION [None]
  - OEDEMA PERIPHERAL [None]
